FAERS Safety Report 5749422-7 (Version None)
Quarter: 2008Q2

REPORT INFORMATION
  Report Type: 
  Country: None (occurrence: None)
  Receive Date: 20080522
  Receipt Date: 20080522
  Transmission Date: 20081010
  Serious: Yes (Life-Threatening)
  Sender: FDA-Public Use
  Company Number: None

PATIENT
  Age: 72 Year
  Sex: Female
  Weight: 53.5244 kg

DRUGS (1)
  1. DIGITK 125MCG ? [Suspect]
     Indication: ATRIAL FIBRILLATION
     Dosage: 125MCG 1 DAILY PO
     Route: 048
     Dates: start: 20071205, end: 20080521

REACTIONS (5)
  - ANOREXIA [None]
  - DIZZINESS [None]
  - NAUSEA [None]
  - PHARMACEUTICAL PRODUCT COMPLAINT [None]
  - WEIGHT DECREASED [None]
